FAERS Safety Report 6397091-8 (Version None)
Quarter: 2009Q4

REPORT INFORMATION
  Report Type: 
  Country: None (occurrence: None)
  Receive Date: 20091012
  Receipt Date: 20091002
  Transmission Date: 20100525
  Serious: Yes (Hospitalization, Other)
  Sender: FDA-Public Use
  Company Number: US-ABBOTT-09P-163-0600477-00

PATIENT
  Sex: Female
  Weight: 56.75 kg

DRUGS (1)
  1. SYNTHROID [Suspect]
     Indication: HYPOTHYROIDISM
     Route: 048
     Dates: start: 19780101

REACTIONS (4)
  - CHROMATURIA [None]
  - JOINT STIFFNESS [None]
  - THYROID CANCER [None]
  - THYROID NEOPLASM [None]
